FAERS Safety Report 6025877-8 (Version None)
Quarter: 2008Q4

REPORT INFORMATION
  Report Type: 
  Country: None (occurrence: None)
  Receive Date: 20081222
  Receipt Date: 20081210
  Transmission Date: 20090506
  Serious: Yes (Other)
  Sender: FDA-Public Use
  Company Number: AEUSA200800292

PATIENT
  Sex: Male

DRUGS (1)
  1. GAMIMUNE - (IMMUNE GLOBULIN INTRAVENOUS (HUMAN) SOLVENT/DETERGENT) [Suspect]
     Indication: PRIMARY IMMUNODEFICIENCY SYNDROME
     Dosage: IV
     Route: 042
     Dates: start: 20030101

REACTIONS (2)
  - ANAPHYLACTOID REACTION [None]
  - DRUG INTOLERANCE [None]
